FAERS Safety Report 21521993 (Version 1)
Quarter: 2022Q4

REPORT INFORMATION
  Report Type: Other
  Country: None (occurrence: US)
  Receive Date: 20221028
  Receipt Date: 20221028
  Transmission Date: 20230112
  Serious: Yes (Hospitalization)
  Sender: FDA-Public Use
  Company Number: US-B.Braun Medical Inc.-2134275

PATIENT
  Age: 74 Year
  Sex: Male

DRUGS (1)
  1. CEFAZOLIN [Suspect]
     Active Substance: CEFAZOLIN

REACTIONS (3)
  - Accidental overdose [Recovering/Resolving]
  - Catheter site haemorrhage [Recovering/Resolving]
  - International normalised ratio increased [Recovering/Resolving]
